FAERS Safety Report 11815388 (Version 1)
Quarter: 2015Q4

REPORT INFORMATION
  Report Type: Spontaneous
  Country: US (occurrence: US)
  Receive Date: 20151209
  Receipt Date: 20151209
  Transmission Date: 20160305
  Serious: No
  Sender: FDA-Public Use
  Company Number: US-BAXALTA-2015BLT003025

PATIENT
  Sex: Female

DRUGS (1)
  1. FLEXBUMIN [Suspect]
     Active Substance: ALBUMIN (HUMAN)
     Indication: RENAL FAILURE
     Dosage: UNK
     Route: 042
     Dates: start: 20151123, end: 20151123

REACTIONS (2)
  - Wheezing [Recovered/Resolved]
  - Tachycardia [Recovered/Resolved]

NARRATIVE: CASE EVENT DATE: 20151123
